FAERS Safety Report 8172524-5 (Version None)
Quarter: 2012Q1

REPORT INFORMATION
  Report Type: 
  Country: None (occurrence: None)
  Receive Date: 20120229
  Receipt Date: 20120217
  Transmission Date: 20120608
  Serious: Yes (Hospitalization, Other)
  Sender: FDA-Public Use
  Company Number: US-BAYER-2011-091884

PATIENT
  Age: 28 Year
  Sex: Female
  Weight: 53.061 kg

DRUGS (2)
  1. YAZ [Suspect]
     Dosage: UNK
     Dates: start: 20080101, end: 20110101
  2. YASMIN [Suspect]
     Dosage: UNK
     Dates: start: 20080101, end: 20110101

REACTIONS (10)
  - PAIN [None]
  - DYSPNOEA [None]
  - ANXIETY [None]
  - DIZZINESS [None]
  - INJURY [None]
  - GENERAL PHYSICAL HEALTH DETERIORATION [None]
  - EMOTIONAL DISTRESS [None]
  - ANHEDONIA [None]
  - LOSS OF CONSCIOUSNESS [None]
  - PULMONARY EMBOLISM [None]
